FAERS Safety Report 9248855 (Version 1)
Quarter: 2013Q2

REPORT INFORMATION
  Report Type: Report from Study
  Country: GB (occurrence: GB)
  Receive Date: 20130423
  Receipt Date: 20130423
  Transmission Date: 20140414
  Serious: Yes (Death, Other)
  Sender: FDA-Public Use
  Company Number: GB-ROCHE-1216595

PATIENT
  Age: 56 Year
  Sex: 0

DRUGS (1)
  1. BEVACIZUMAB [Suspect]
     Indication: MALIGNANT MELANOMA
     Dosage: LAST INFUSION RECEIVED ON 29/DEC/2008
     Route: 065
     Dates: start: 20081208

REACTIONS (2)
  - Death [Fatal]
  - Neuralgia [Not Recovered/Not Resolved]
